FAERS Safety Report 18642327 (Version 1)
Quarter: 2020Q4

REPORT INFORMATION
  Report Type: Spontaneous
  Country: US (occurrence: US)
  Receive Date: 20201218
  Receipt Date: 20201218
  Transmission Date: 20210114
  Serious: No
  Sender: FDA-Public Use
  Company Number: None

PATIENT
  Age: 75 Year
  Sex: Female
  Weight: 64.35 kg

DRUGS (6)
  1. PAXIL 10MG, ORAL [Concomitant]
  2. TAXOTERE, ORAL [Concomitant]
  3. XANAX 0.25MG, ORAL [Concomitant]
  4. CYCLOPHOSPHAMIDE 50MG, ORAL [Concomitant]
  5. NEULASTA [Suspect]
     Active Substance: PEGFILGRASTIM
     Indication: BREAST CANCER FEMALE
     Dosage: ?          OTHER FREQUENCY:EVERY 21 DAYS;?
     Route: 061
     Dates: start: 20201030
  6. PROPRANOLOL HCL 20MG, ORAL [Concomitant]

REACTIONS (2)
  - Bone pain [None]
  - Myalgia [None]

NARRATIVE: CASE EVENT DATE: 20201218
